FAERS Safety Report 9530534 (Version 3)
Quarter: 2013Q4

REPORT INFORMATION
  Report Type: Spontaneous
  Country: CZ (occurrence: CZ)
  Receive Date: 20130918
  Receipt Date: 20131017
  Transmission Date: 20140711
  Serious: Yes (Life-Threatening, Hospitalization, Other)
  Sender: FDA-Public Use
  Company Number: CZ-AMGEN-CZESP2013065221

PATIENT
  Age: 61 Year
  Sex: Female

DRUGS (9)
  1. ENBREL [Suspect]
     Indication: RHEUMATOID ARTHRITIS
     Dosage: 50 MG, WEEKLY
     Route: 058
     Dates: start: 20110701, end: 201307
  2. CALTRATE PLUS                      /01438001/ [Concomitant]
     Dosage: UNK
  3. LETROX [Concomitant]
     Dosage: 75 UG PER DAY
     Dates: start: 200811
  4. VIGANTOL                           /00318501/ [Concomitant]
     Dosage: TWO DROPS THREE TIMES A WEEK
     Dates: start: 2007
  5. ACIDUM FOLICUM [Concomitant]
     Dosage: 10 MG, WEEKLY
     Dates: start: 201003
  6. NOLPAZA [Concomitant]
     Dosage: 40 MG, TWICE PER DAY
     Dates: start: 201204
  7. LOKREN [Concomitant]
     Dosage: 10 MG PER DAY
     Dates: start: 2003
  8. MEDROL                             /00049601/ [Concomitant]
     Dosage: 8 MG PER DAY
     Dates: start: 200705
  9. METHOTREXATE [Concomitant]
     Dosage: 10 MG, WEEKLY
     Dates: start: 201003

REACTIONS (6)
  - Ovarian epithelial cancer [Unknown]
  - Arthritis [Unknown]
  - Arthropathy [Unknown]
  - Cholelithiasis [Unknown]
  - Ovarian cyst [Unknown]
  - Pelvic abscess [Unknown]
